FAERS Safety Report 6731345-8 (Version None)
Quarter: 2010Q2

REPORT INFORMATION
  Report Type: 
  Country: None (occurrence: None)
  Receive Date: 20100517
  Receipt Date: 20100517
  Transmission Date: 20101027
  Serious: Yes (Hospitalization)
  Sender: FDA-Public Use
  Company Number: None

PATIENT
  Age: 49 Year
  Sex: Male
  Weight: 99 kg

DRUGS (2)
  1. HYLAN G-F 20 [Suspect]
     Indication: OSTEOARTHRITIS
     Dosage: 48 MG OTHER OTHER
     Route: 050
     Dates: start: 20100416, end: 20100416
  2. HYLAN G-F 20 [Suspect]
     Indication: PAIN
     Dosage: 48 MG OTHER OTHER
     Route: 050
     Dates: start: 20100416, end: 20100416

REACTIONS (3)
  - ARTHRITIS BACTERIAL [None]
  - HAEMOPHILUS INFECTION [None]
  - HEPATIC ENZYME INCREASED [None]
